FAERS Safety Report 25207173 (Version 3)
Quarter: 2025Q4

REPORT INFORMATION
  Report Type: Report from Study
  Country: PA (occurrence: PA)
  Receive Date: 20250417
  Receipt Date: 20251028
  Transmission Date: 20260118
  Serious: Yes (Hospitalization, Disabling)
  Sender: NOVARTIS
  Company Number: PA-002147023-NVSC2025PA063248

PATIENT
  Sex: Female

DRUGS (6)
  1. KISQALI [Suspect]
     Active Substance: RIBOCICLIB SUCCINATE
     Indication: Breast cancer metastatic
     Dosage: 600 MG, QD (2TABLETS)
     Route: 048
     Dates: start: 202409
  2. KISQALI [Suspect]
     Active Substance: RIBOCICLIB SUCCINATE
     Dosage: 400 MG, QD ( 2TABLETS)
     Route: 048
  3. LEVOTHYROXINE [Concomitant]
     Active Substance: LEVOTHYROXINE
     Indication: Thyroid disorder
     Dosage: 1 DOSAGE FORM, QD (TABLET)
     Route: 065
  4. VERAPAMIL [Concomitant]
     Active Substance: VERAPAMIL HYDROCHLORIDE
     Indication: Hypertension
     Dosage: 2 DOSAGE FORM, BID (4 TABLETS DAILY, 2 OF EACH ONE IN THE MORNING AND 2 OF EACH ONE IN THE AFTERNOON
     Route: 065
  5. LISINOPRIL [Concomitant]
     Active Substance: LISINOPRIL
     Indication: Hypertension
     Dosage: 2 DOSAGE FORM, BID (4 TABLETS DAILY, 2 OF EACH ONE IN THE MORNING AND 2 OF EACH ONE IN THE AFTERNOON
     Route: 065
  6. METFORMIN [Concomitant]
     Active Substance: METFORMIN HYDROCHLORIDE
     Indication: Glucose tolerance impaired
     Dosage: 0.5 DOSAGE FORM, BID TABLET (IN THE MORNING AND  IN THE  AFTERNOON)
     Route: 065

REACTIONS (11)
  - Blood sodium decreased [Unknown]
  - Blood potassium decreased [Recovered/Resolved]
  - Blood magnesium decreased [Recovered/Resolved]
  - Condition aggravated [Recovered/Resolved]
  - Arthralgia [Not Recovered/Not Resolved]
  - Osteoarthritis [Not Recovered/Not Resolved]
  - Constipation [Unknown]
  - Dyschezia [Unknown]
  - Gait disturbance [Unknown]
  - Dysstasia [Unknown]
  - Malaise [Unknown]

NARRATIVE: CASE EVENT DATE: 20240101
